FAERS Safety Report 13807868 (Version 1)
Quarter: 2017Q3

REPORT INFORMATION
  Report Type: Spontaneous
  Country: JP (occurrence: JP)
  Receive Date: 20170728
  Receipt Date: 20170728
  Transmission Date: 20171127
  Serious: Yes (Hospitalization)
  Sender: FDA-Public Use
  Company Number: JP-TEVA-790221ROM

PATIENT
  Age: 62 Year
  Sex: Female

DRUGS (3)
  1. PREDNISOLONE. [Concomitant]
     Active Substance: PREDNISOLONE
     Indication: ARTERITIS
     Dosage: RECEIVED 40MG DAILY WITH FURTHER IN-PROCESS TAPERING
     Route: 048
  2. WARFARIN [Suspect]
     Active Substance: WARFARIN
     Indication: ARTERITIS
     Dosage: INITIAL DOSE: 1MG DAILY
     Route: 048
  3. PREDNISONE. [Concomitant]
     Active Substance: PREDNISONE
     Indication: ARTERITIS
     Dosage: 20 MILLIGRAM DAILY;
     Route: 048

REACTIONS (2)
  - Skin necrosis [Recovering/Resolving]
  - Hypersensitivity vasculitis [Recovered/Resolved]
